FAERS Safety Report 6088903-6 (Version None)
Quarter: 2009Q1

REPORT INFORMATION
  Report Type: 
  Country: None (occurrence: None)
  Receive Date: 20090224
  Receipt Date: 20090210
  Transmission Date: 20090719
  Serious: Yes (Hospitalization)
  Sender: FDA-Public Use
  Company Number: SK-AMGEN-US332252

PATIENT
  Sex: Female

DRUGS (5)
  1. ENBREL [Suspect]
     Indication: RHEUMATOID ARTHRITIS
     Dosage: 50 MG PFS; FREQUENCY NOT SPECIFIED
     Route: 058
     Dates: start: 20080501
  2. PREDNISONUM [Concomitant]
     Dosage: NOT SPECIFIED
     Route: 065
  3. DICLOFENAC SODIUM/ MISOPROSTOL [Concomitant]
     Route: 065
  4. ARTHROTEC [Concomitant]
     Route: 065
  5. EPOETIN ALFA [Concomitant]
     Route: 065

REACTIONS (2)
  - CONDITION AGGRAVATED [None]
  - RENAL FAILURE CHRONIC [None]
